FAERS Safety Report 18025620 (Version 1)
Quarter: 2020Q3

REPORT INFORMATION
  Report Type: Spontaneous
  Country: QA (occurrence: QA)
  Receive Date: 20200715
  Receipt Date: 20200715
  Transmission Date: 20201103
  Serious: Yes (Other)
  Sender: FDA-Public Use
  Company Number: QA-009507513-2007QAT003781

PATIENT
  Age: 62 Year
  Sex: Female

DRUGS (2)
  1. EPTIFIBATIDE. [Suspect]
     Active Substance: EPTIFIBATIDE
     Indication: PERCUTANEOUS CORONARY INTERVENTION
     Dosage: 180 MICROGRAM/KG AS A BOLUS DOSE THEN 2 MICROGRAM/KG/MIN INFUSION
     Route: 042
  2. EPTIFIBATIDE. [Suspect]
     Active Substance: EPTIFIBATIDE
     Dosage: CONTINOUS FOR 18 HOURS
     Route: 042

REACTIONS (2)
  - Vascular stent thrombosis [Recovered/Resolved]
  - Thrombocytopenia [Recovered/Resolved]
